APPROVED DRUG PRODUCT: KELNOR
Active Ingredient: ETHINYL ESTRADIOL; ETHYNODIOL DIACETATE
Strength: 0.035MG;1MG
Dosage Form/Route: TABLET;ORAL-28
Application: A076785 | Product #001 | TE Code: AB
Applicant: BARR LABORATORIES INC
Approved: May 23, 2005 | RLD: No | RS: No | Type: RX